FAERS Safety Report 25269672 (Version 1)
Quarter: 2025Q2

REPORT INFORMATION
  Report Type: Spontaneous
  Country: GB (occurrence: GB)
  Receive Date: 20250505
  Receipt Date: 20250505
  Transmission Date: 20250717
  Serious: Yes (Other)
  Sender: IPSEN BIOPHARMACEUTICALS, INC.
  Company Number: GB-ADVANZ PHARMA-202404003092

PATIENT
  Age: 72 Year
  Sex: Male

DRUGS (4)
  1. LANREOTIDE ACETATE [Suspect]
     Active Substance: LANREOTIDE ACETATE
     Indication: Neuroendocrine tumour
     Route: 065
     Dates: start: 20250123
  2. LANREOTIDE ACETATE [Suspect]
     Active Substance: LANREOTIDE ACETATE
     Indication: Neuroendocrine tumour
     Dosage: 120 MG, Q3W
     Route: 058
     Dates: start: 202311
  3. LANREOTIDE ACETATE [Suspect]
     Active Substance: LANREOTIDE ACETATE
     Route: 065
  4. LANREOTIDE ACETATE [Suspect]
     Active Substance: LANREOTIDE ACETATE
     Route: 065
     Dates: start: 20250417

REACTIONS (16)
  - Necrolytic migratory erythema [Unknown]
  - Condition aggravated [Unknown]
  - Glucagonoma [Unknown]
  - Injection site warmth [Unknown]
  - Injection site mass [Unknown]
  - Abscess limb [Not Recovered/Not Resolved]
  - Skin disorder [Unknown]
  - Acne [Recovered/Resolved]
  - Wound [Unknown]
  - Erythema [Unknown]
  - Dry skin [Unknown]
  - Abscess [Unknown]
  - Injection site pain [Unknown]
  - Treatment delayed [Unknown]
  - Off label use [Unknown]
  - Treatment delayed [Unknown]

NARRATIVE: CASE EVENT DATE: 20240101
